FAERS Safety Report 6986084-5 (Version None)
Quarter: 2010Q3

REPORT INFORMATION
  Report Type: 
  Country: None (occurrence: None)
  Receive Date: 20100910
  Receipt Date: 20100827
  Transmission Date: 20110219
  Serious: Yes (Hospitalization, Other)
  Sender: FDA-Public Use
  Company Number: AUR-APL-2010-02091

PATIENT
  Age: 53 Year
  Sex: Male

DRUGS (3)
  1. RISPERIDINE [Suspect]
     Indication: SCHIZOPHRENIA
  2. TRAZODONE HCL [Suspect]
     Indication: SCHIZOPHRENIA
  3. VARENICLINE [Concomitant]

REACTIONS (4)
  - DEPRESSION [None]
  - MENTAL DISORDER [None]
  - STRESS [None]
  - THINKING ABNORMAL [None]
